FAERS Safety Report 21271592 (Version 9)
Quarter: 2024Q2

REPORT INFORMATION
  Report Type: Spontaneous
  Country: US (occurrence: US)
  Receive Date: 20220830
  Receipt Date: 20240415
  Transmission Date: 20240716
  Serious: No
  Sender: FDA-Public Use
  Company Number: US-PFIZER INC-PV202200011746

PATIENT
  Age: 75 Year
  Sex: Female

DRUGS (1)
  1. IBRANCE [Suspect]
     Active Substance: PALBOCICLIB
     Indication: Breast cancer female
     Dosage: 125 MG, CYCLIC

REACTIONS (8)
  - Alopecia [Unknown]
  - Fatigue [Unknown]
  - Impaired healing [Unknown]
  - Nervousness [Unknown]
  - Myalgia [Unknown]
  - Gait disturbance [Unknown]
  - Decreased appetite [Unknown]
  - Wrong dose [Unknown]

NARRATIVE: CASE EVENT DATE: 20220601
